FAERS Safety Report 7810326-7 (Version None)
Quarter: 2011Q4

REPORT INFORMATION
  Report Type: 
  Country: None (occurrence: None)
  Receive Date: 20111012
  Receipt Date: 20111011
  Transmission Date: 20120403
  Serious: Yes (Hospitalization)
  Sender: FDA-Public Use
  Company Number: US-AMGEN-USASP2011050174

PATIENT
  Sex: Female

DRUGS (1)
  1. ENBREL [Suspect]
     Indication: RHEUMATOID ARTHRITIS
     Dates: start: 20010821

REACTIONS (3)
  - INJURY ASSOCIATED WITH DEVICE [None]
  - INJECTION SITE HAEMORRHAGE [None]
  - RHEUMATOID ARTHRITIS [None]
